FAERS Safety Report 19783099 (Version 1)
Quarter: 2021Q3

REPORT INFORMATION
  Report Type: Spontaneous
  Country: DE (occurrence: DE)
  Receive Date: 20210902
  Receipt Date: 20210902
  Transmission Date: 20211014
  Serious: Yes (Other)
  Sender: FDA-Public Use
  Company Number: DE-ALLERGAN-2130868US

PATIENT
  Sex: Female
  Weight: 80 kg

DRUGS (5)
  1. OMEPRAZOLE. [Concomitant]
     Active Substance: OMEPRAZOLE
     Dosage: IF REQUIRED (20 MG DAILY)
     Route: 065
  2. FOLSAURE [Concomitant]
     Active Substance: FOLIC ACID
     Indication: PROPHYLAXIS OF NEURAL TUBE DEFECT
     Route: 065
     Dates: start: 20200104, end: 20200909
  3. BOOSTRIX [Concomitant]
     Active Substance: TETANUS TOXOID, REDUCED DIPHTHERIA TOXOID AND ACELLULAR PERTUSSIS VACCINE, ADSORBED ANTIGENS
     Indication: IMMUNISATION
     Dosage: UNK UNK, SINGLE
     Route: 030
     Dates: start: 20200820, end: 20200820
  4. ESCITALOPRAM OXALATE ? BP [Suspect]
     Active Substance: ESCITALOPRAM OXALATE
     Indication: DEPRESSION
     Dosage: 10 MG, QD
     Route: 065
  5. QUETIAPINE RETARD EG [Suspect]
     Active Substance: QUETIAPINE FUMARATE
     Indication: BORDERLINE PERSONALITY DISORDER
     Dosage: INITIAL 200 MG DAILY, DOSAGE INCREASED TO 300 MG DAILY
     Route: 065
     Dates: start: 20200104, end: 20201012

REACTIONS (2)
  - Pregnancy [Unknown]
  - Gestational diabetes [Recovered/Resolved]
